FAERS Safety Report 6192004-6 (Version None)
Quarter: 2009Q2

REPORT INFORMATION
  Report Type: 
  Country: None (occurrence: None)
  Receive Date: 20090515
  Receipt Date: 20090506
  Transmission Date: 20091009
  Serious: Yes (Hospitalization)
  Sender: FDA-Public Use
  Company Number: B0572857A

PATIENT
  Sex: Female

DRUGS (1)
  1. ZINNAT [Suspect]
     Indication: DRUG USE FOR UNKNOWN INDICATION
     Dosage: 250MG SINGLE DOSE
     Route: 048
     Dates: start: 20071105, end: 20071105

REACTIONS (2)
  - ANAPHYLACTIC SHOCK [None]
  - WRONG DRUG ADMINISTERED [None]
